FAERS Safety Report 9895696 (Version 1)
Quarter: 2014Q1

REPORT INFORMATION
  Report Type: Spontaneous
  Country: US (occurrence: US)
  Receive Date: 20140213
  Receipt Date: 20140213
  Transmission Date: 20141002
  Serious: No
  Sender: FDA-Public Use
  Company Number: US-BRISTOL-MYERS SQUIBB COMPANY-18762476

PATIENT
  Age: 62 Year
  Sex: Female
  Weight: 95.24 kg

DRUGS (1)
  1. ORENCIA [Suspect]
     Indication: RHEUMATOID ARTHRITIS
     Route: 042
     Dates: start: 20130329

REACTIONS (3)
  - Headache [Unknown]
  - Wheezing [Unknown]
  - Nasopharyngitis [Unknown]
